FAERS Safety Report 5456359-X (Version None)
Quarter: 2007Q3

REPORT INFORMATION
  Report Type: 
  Country: None (occurrence: None)
  Receive Date: 20070918
  Receipt Date: 20070430
  Transmission Date: 20080115
  Serious: Yes (Other)
  Sender: FDA-Public Use
  Company Number: US-ASTRAZENECA-2006UW25010

PATIENT
  Age: 34 Year
  Sex: Female
  Weight: 88.2 kg

DRUGS (4)
  1. SEROQUEL [Suspect]
     Indication: INSOMNIA
     Route: 048
     Dates: start: 19980101, end: 20040101
  2. GEODON [Concomitant]
     Dates: start: 20060101
  3. HALDOL [Concomitant]
     Dates: start: 19990101
  4. TRILAFON [Concomitant]
     Dates: start: 19980101

REACTIONS (2)
  - DIABETES MELLITUS [None]
  - PANCREATITIS [None]
